FAERS Safety Report 24046259 (Version 1)
Quarter: 2024Q3

REPORT INFORMATION
  Report Type: Spontaneous
  Country: FR (occurrence: FR)
  Receive Date: 20240703
  Receipt Date: 20240703
  Transmission Date: 20241017
  Serious: Yes (Disabling)
  Sender: PFIZER
  Company Number: None

PATIENT
  Age: 62 Year
  Sex: Male

DRUGS (7)
  1. RITUXIMAB [Suspect]
     Active Substance: RITUXIMAB
     Indication: Plasma cell myeloma
     Dosage: UNK
     Route: 042
     Dates: start: 20240219, end: 20240506
  2. OXALIPLATIN [Suspect]
     Active Substance: OXALIPLATIN
     Indication: Plasma cell myeloma
     Dosage: UNK
     Route: 042
     Dates: start: 20240219, end: 20240506
  3. DEXAMETHASONE [Concomitant]
     Active Substance: DEXAMETHASONE
     Dosage: UNK
  4. MELPHALAN [Concomitant]
     Active Substance: MELPHALAN
     Dosage: UNK
  5. CARMUSTINE [Concomitant]
     Active Substance: CARMUSTINE
     Dosage: UNK
  6. CYTARABINE [Concomitant]
     Active Substance: CYTARABINE
     Dosage: UNK
  7. ETOPOSIDE [Concomitant]
     Active Substance: ETOPOSIDE
     Dosage: UNK

REACTIONS (2)
  - Deafness bilateral [Not Recovered/Not Resolved]
  - Off label use [Unknown]

NARRATIVE: CASE EVENT DATE: 20240601
